FAERS Safety Report 12537633 (Version 1)
Quarter: 2016Q3

REPORT INFORMATION
  Report Type: Spontaneous
  Country: US (occurrence: US)
  Receive Date: 20160707
  Receipt Date: 20160707
  Transmission Date: 20161109
  Serious: No
  Sender: FDA-Public Use
  Company Number: US-MALLINCKRODT-T201600754

PATIENT
  Sex: Female

DRUGS (1)
  1. OCTREOSCAN [Suspect]
     Active Substance: INDIUM IN-111 CHLORIDE\INDIUM IN-111 PENTETREOTIDE\PENTETREOTIDE
     Indication: PRODUCT USED FOR UNKNOWN INDICATION
     Dosage: 6 MCI, UNK
     Route: 065
     Dates: start: 20160223

REACTIONS (16)
  - Fatigue [Unknown]
  - Dyspnoea [Unknown]
  - Abdominal pain upper [Unknown]
  - Cough [Unknown]
  - Oropharyngeal pain [Unknown]
  - Asthenia [Unknown]
  - Rhinorrhoea [Unknown]
  - Ocular icterus [Unknown]
  - Decreased appetite [Unknown]
  - Back pain [None]
  - Dizziness postural [Unknown]
  - Faeces discoloured [Unknown]
  - Pyrexia [Unknown]
  - Yellow skin [Unknown]
  - Dysphonia [Unknown]
  - Erythema [Unknown]

NARRATIVE: CASE EVENT DATE: 20160223
